FAERS Safety Report 23762634 (Version 2)
Quarter: 2024Q2

REPORT INFORMATION
  Report Type: Spontaneous
  Country: US (occurrence: US)
  Receive Date: 20240419
  Receipt Date: 20240508
  Transmission Date: 20240716
  Serious: Yes (Other)
  Sender: FDA-Public Use
  Company Number: US-BRISTOL-MYERS SQUIBB COMPANY-2024-058597

PATIENT
  Age: 88 Year
  Sex: Female

DRUGS (2)
  1. REVLIMID [Suspect]
     Active Substance: LENALIDOMIDE
     Indication: Plasma cell myeloma
     Dosage: DAY1-21 OF 28 DAYS
     Route: 048
     Dates: start: 20231027
  2. REVLIMID [Suspect]
     Active Substance: LENALIDOMIDE
     Dosage: DAY1-21 OF 28 DAYS
     Route: 048
     Dates: start: 20231027

REACTIONS (3)
  - Fall [Recovered/Resolved]
  - Skin laceration [Recovered/Resolved]
  - Sinusitis [Recovering/Resolving]
